FAERS Safety Report 9890522 (Version 2)
Quarter: 2014Q1

REPORT INFORMATION
  Report Type: Spontaneous
  Country: JP (occurrence: JP)
  Receive Date: 20140212
  Receipt Date: 20140225
  Transmission Date: 20141002
  Serious: Yes (Other)
  Sender: FDA-Public Use
  Company Number: JP-ACCORD-021822

PATIENT
  Age: 48 Year
  Sex: Female

DRUGS (1)
  1. METHOTREXATE [Suspect]
     Indication: RHEUMATOID ARTHRITIS
     Dosage: SINCE SEPTEMBER 1996, WITH DOSES RANGING FROM 4 TO 8 MG PER?WEEK AND DISCONTINUED ON N OCTOBER 2007
     Dates: end: 2007

REACTIONS (1)
  - Post transplant lymphoproliferative disorder [Recovered/Resolved]
